FAERS Safety Report 5464003-0 (Version None)
Quarter: 2007Q3

REPORT INFORMATION
  Report Type: 
  Country: None (occurrence: None)
  Receive Date: 20070919
  Receipt Date: 20070914
  Transmission Date: 20080115
  Serious: Yes (Death)
  Sender: FDA-Public Use
  Company Number: 163-21880-07081463

PATIENT
  Age: 67 Year
  Sex: Male

DRUGS (1)
  1. REVLIMID [Suspect]
     Indication: MULTIPLE MYELOMA
     Dosage: 5 MG, 1 IN 1 D, ORAL
     Route: 048
     Dates: start: 20070301, end: 20070701

REACTIONS (3)
  - MALIGNANT NEOPLASM PROGRESSION [None]
  - MULTIPLE MYELOMA [None]
  - SKIN DISCOLOURATION [None]
